FAERS Safety Report 4867880-7 (Version None)
Quarter: 2005Q4

REPORT INFORMATION
  Report Type: 
  Country: None (occurrence: None)
  Receive Date: 20051227
  Receipt Date: 20051216
  Transmission Date: 20060501
  Serious: Yes (Other)
  Sender: FDA-Public Use
  Company Number: 8013949

PATIENT
  Age: 36 Year
  Sex: Female
  Weight: 65 kg

DRUGS (4)
  1. LEVETIRACETAM [Suspect]
     Indication: EPILEPSY
     Dosage: 500 MG 2/D PO
     Route: 048
     Dates: start: 20050907, end: 20050911
  2. MAGNESIUM VALPROATE [Suspect]
     Indication: EPILEPSY
     Dosage: 600 MG 3/D PO
     Route: 048
  3. LAMOTRIGINE [Suspect]
     Indication: EPILEPSY
     Dosage: 100 MG /D PO
     Route: 048
  4. CLONAZEPAM [Suspect]
     Indication: EPILEPSY
     Dosage: 2 MG 1/D PO
     Route: 048

REACTIONS (7)
  - AGGRESSION [None]
  - AGITATION [None]
  - ANXIETY [None]
  - CONDITION AGGRAVATED [None]
  - CONVULSION [None]
  - HALLUCINATION [None]
  - INCOHERENT [None]
